FAERS Safety Report 16053693 (Version 2)
Quarter: 2019Q2

REPORT INFORMATION
  Report Type: Spontaneous
  Country: US (occurrence: US)
  Receive Date: 20190308
  Receipt Date: 20190613
  Transmission Date: 20190711
  Serious: No
  Sender: FDA-Public Use
  Company Number: US-VIFOR (INTERNATIONAL) INC.-VIT-2019-02040

PATIENT
  Sex: Male
  Weight: 57.2 kg

DRUGS (14)
  1. GLIPIZIDE ER [Concomitant]
     Active Substance: GLIPIZIDE
  2. CLOPIDOGREL BISULFATE. [Concomitant]
     Active Substance: CLOPIDOGREL BISULFATE
  3. DORZOLAMIDE HCL [Concomitant]
     Active Substance: DORZOLAMIDE HYDROCHLORIDE
  4. XALATAN [Concomitant]
     Active Substance: LATANOPROST
  5. VELTASSA [Suspect]
     Active Substance: PATIROMER
     Indication: HYPERKALAEMIA
     Route: 048
     Dates: start: 20171114
  6. FERROUS SULFATE. [Concomitant]
     Active Substance: FERROUS SULFATE
  7. JANUVIA [Concomitant]
     Active Substance: SITAGLIPTIN PHOSPHATE
  8. ALLOPURINOL. [Concomitant]
     Active Substance: ALLOPURINOL
  9. COSOPT [Concomitant]
     Active Substance: DORZOLAMIDE HYDROCHLORIDE\TIMOLOL MALEATE
  10. TIMOLOL MALEATE. [Concomitant]
     Active Substance: TIMOLOL MALEATE
  11. LATANOPROST. [Concomitant]
     Active Substance: LATANOPROST
  12. TRULICITY [Concomitant]
     Active Substance: DULAGLUTIDE
  13. LOSARTAN POTASSIUM. [Concomitant]
     Active Substance: LOSARTAN POTASSIUM
  14. VITAMIN B12 [Concomitant]
     Active Substance: CYANOCOBALAMIN

REACTIONS (1)
  - Blood glucose decreased [Unknown]
